FAERS Safety Report 22268441 (Version 4)
Quarter: 2023Q2

REPORT INFORMATION
  Report Type: Spontaneous
  Country: US (occurrence: US)
  Receive Date: 20230430
  Receipt Date: 20230608
  Transmission Date: 20230721
  Serious: No
  Sender: FDA-Public Use
  Company Number: US-SANOFI-01588280

PATIENT
  Sex: Female

DRUGS (1)
  1. SELENIUM SULFIDE [Suspect]
     Active Substance: SELENIUM SULFIDE
     Indication: Pruritus
     Dosage: UNK
     Route: 065

REACTIONS (1)
  - Hair colour changes [Unknown]
